FAERS Safety Report 5787202-7 (Version None)
Quarter: 2008Q2

REPORT INFORMATION
  Report Type: 
  Country: None (occurrence: None)
  Receive Date: 20080625
  Receipt Date: 20070820
  Transmission Date: 20081010
  Serious: No
  Sender: FDA-Public Use
  Company Number: US-ASTRAZENECA-2007UW19933

PATIENT
  Age: 81 Year
  Sex: Male

DRUGS (3)
  1. PULMICORT-100 [Suspect]
     Indication: CHRONIC OBSTRUCTIVE PULMONARY DISEASE
     Route: 055
  2. PULMICORT-100 [Suspect]
     Indication: ASTHMA
     Route: 055
  3. DUONEB [Concomitant]

REACTIONS (2)
  - DYSPHONIA [None]
  - NERVOUSNESS [None]
